FAERS Safety Report 22780111 (Version 2)
Quarter: 2023Q4

REPORT INFORMATION
  Report Type: Report from Study
  Country: IE (occurrence: IE)
  Receive Date: 20230803
  Receipt Date: 20231007
  Transmission Date: 20240110
  Serious: Yes (Other)
  Sender: FDA-Public Use
  Company Number: IE-002147023-NVSC2023IE167869

PATIENT
  Age: 63 Year
  Sex: Male

DRUGS (2)
  1. COSENTYX [Suspect]
     Active Substance: SECUKINUMAB
     Indication: Psoriatic arthropathy
     Dosage: 300 MG, QMO
     Route: 065
     Dates: start: 20230202
  2. COSENTYX [Suspect]
     Active Substance: SECUKINUMAB
     Dosage: UNK (19 JUL YEAR UNSPECIFIED)
     Route: 065

REACTIONS (1)
  - Cellulitis [Unknown]
